FAERS Safety Report 4681409-8 (Version None)
Quarter: 2005Q2

REPORT INFORMATION
  Report Type: 
  Country: None (occurrence: None)
  Receive Date: 20050603
  Receipt Date: 20050525
  Transmission Date: 20051028
  Serious: Yes (Other)
  Sender: FDA-Public Use
  Company Number: 2005UW08202

PATIENT
  Age: 7 Year
  Sex: Male

DRUGS (2)
  1. PULMICORT RESPULES [Suspect]
     Route: 055
  2. XOPENEX [Suspect]

REACTIONS (1)
  - LARYNGOSPASM [None]
